FAERS Safety Report 20798847 (Version 2)
Quarter: 2024Q4

REPORT INFORMATION
  Report Type: Spontaneous
  Country: US (occurrence: US)
  Receive Date: 20220507
  Receipt Date: 20241202
  Transmission Date: 20250114
  Serious: No
  Sender: BRISTOL-MYERS SQUIBB COMPANY
  Company Number: US-BRISTOL-MYERS SQUIBB COMPANY-2022-022080

PATIENT
  Age: 61 Year
  Sex: Male

DRUGS (2)
  1. ORENCIA [Suspect]
     Active Substance: ABATACEPT
     Indication: Rheumatoid arthritis
     Dosage: FROM 10-AUG-2020 TO CURRENT AND 09-APR-2022
     Route: 058
     Dates: start: 20200810
  2. ORENCIA [Suspect]
     Active Substance: ABATACEPT
     Route: 057
     Dates: start: 20220409

REACTIONS (1)
  - Pain [Recovering/Resolving]
